FAERS Safety Report 13793303 (Version 1)
Quarter: 2017Q3

REPORT INFORMATION
  Report Type: Spontaneous
  Country: GB (occurrence: GB)
  Receive Date: 20170726
  Receipt Date: 20170726
  Transmission Date: 20171127
  Serious: Yes (Hospitalization)
  Sender: FDA-Public Use
  Company Number: GB-PFIZER INC-2017319176

PATIENT
  Age: 72 Year
  Sex: Male

DRUGS (1)
  1. EPLERENONE. [Suspect]
     Active Substance: EPLERENONE
     Indication: EJECTION FRACTION
     Dosage: 25 MG, 1X/DAY
     Route: 048
     Dates: end: 20170708

REACTIONS (1)
  - Chest pain [Recovering/Resolving]
